FAERS Safety Report 6966881-2 (Version None)
Quarter: 2010Q3

REPORT INFORMATION
  Report Type: 
  Country: None (occurrence: None)
  Receive Date: 20100906
  Receipt Date: 20100810
  Transmission Date: 20110219
  Serious: Yes (Life-Threatening, Hospitalization, Other)
  Sender: FDA-Public Use
  Company Number: PHEH2004US08571

PATIENT

DRUGS (13)
  1. ZOMETA [Suspect]
     Indication: BREAST CANCER METASTATIC
     Dates: start: 20020101, end: 20040501
  2. SEROQUEL [Suspect]
  3. DIAZEPAM [Suspect]
  4. DARVOCET-N 100 [Concomitant]
  5. AROMASIN [Concomitant]
  6. ACETAMINOPHEN [Concomitant]
     Indication: PAIN
     Dosage: 325 MG, UNK
  7. COGENTIN [Concomitant]
     Indication: DYSTONIA
     Dosage: 2 MG, UNK
     Route: 030
  8. MYLANTA [Concomitant]
     Indication: ABDOMINAL DISCOMFORT
  9. KAOPECTATE [Concomitant]
     Indication: DIARRHOEA
  10. AMBIEN [Concomitant]
  11. VALIUM [Concomitant]
  12. PROTONIX [Concomitant]
  13. CYMBALTA [Concomitant]

REACTIONS (33)
  - AGITATION [None]
  - ARTERIOSCLEROSIS CORONARY ARTERY [None]
  - ASTHMA [None]
  - ATELECTASIS [None]
  - BIPOLAR DISORDER [None]
  - BLOOD PRESSURE DECREASED [None]
  - BONE DISORDER [None]
  - BORDERLINE PERSONALITY DISORDER [None]
  - COMA [None]
  - DENTAL NECROSIS [None]
  - DISTURBANCE IN SOCIAL BEHAVIOUR [None]
  - ELECTROCARDIOGRAM QT PROLONGED [None]
  - ESSENTIAL HYPERTENSION [None]
  - GANGRENE [None]
  - GASTROINTESTINAL SURGERY [None]
  - GENERALISED ANXIETY DISORDER [None]
  - HYPERLIPIDAEMIA [None]
  - HYPOKALAEMIA [None]
  - MAJOR DEPRESSION [None]
  - MALIGNANT NEOPLASM PROGRESSION [None]
  - METASTASES TO BONE [None]
  - MOOD ALTERED [None]
  - OSTEONECROSIS OF JAW [None]
  - OVERDOSE [None]
  - PAIN [None]
  - RENAL CYST [None]
  - RENAL DISORDER [None]
  - RHABDOMYOLYSIS [None]
  - SCOLIOSIS [None]
  - SELF INJURIOUS BEHAVIOUR [None]
  - SUICIDE ATTEMPT [None]
  - TACHYCARDIA [None]
  - URETHRAL DISORDER [None]
